FAERS Safety Report 6503099-1 (Version None)
Quarter: 2009Q4

REPORT INFORMATION
  Report Type: 
  Country: None (occurrence: None)
  Receive Date: 20091217
  Receipt Date: 20091209
  Transmission Date: 20100525
  Serious: Yes (Hospitalization)
  Sender: FDA-Public Use
  Company Number: FR-SANOFI-AVENTIS-2009SA007473

PATIENT
  Age: 97 Year
  Sex: Female

DRUGS (6)
  1. LASILIX [Suspect]
     Route: 048
  2. DIGITALINE NATIVELLE [Suspect]
     Indication: ARRHYTHMIA
     Route: 048
     Dates: end: 20090329
  3. COVERSYL COMP [Suspect]
     Route: 048
     Dates: start: 20081001
  4. PREVISCAN [Concomitant]
     Indication: DRUG USE FOR UNKNOWN INDICATION
     Route: 048
  5. PREVISCAN [Concomitant]
     Route: 048
  6. LAMALINE [Concomitant]
     Indication: PAIN
     Route: 054

REACTIONS (4)
  - BRADYCARDIA [None]
  - DEHYDRATION [None]
  - ECCHYMOSIS [None]
  - FALL [None]
